FAERS Safety Report 5580200-8 (Version None)
Quarter: 2007Q4

REPORT INFORMATION
  Report Type: 
  Country: None (occurrence: None)
  Receive Date: 20071227
  Receipt Date: 20071227
  Transmission Date: 20080405
  Serious: Yes (Other)
  Sender: FDA-Public Use
  Company Number: None

PATIENT
  Age: 29 Year
  Sex: Male
  Weight: 65.7716 kg

DRUGS (1)
  1. LEVAQUIN [Suspect]
     Indication: SINUSITIS
     Dosage: 500 MG ONCE A DAY PO
     Route: 048
     Dates: start: 20071219, end: 20071220

REACTIONS (3)
  - ANXIETY [None]
  - BRUXISM [None]
  - MUSCLE TIGHTNESS [None]
